FAERS Safety Report 14836902 (Version 1)
Quarter: 2018Q2

REPORT INFORMATION
  Report Type: Spontaneous
  Country: DE (occurrence: DE)
  Receive Date: 20180502
  Receipt Date: 20180502
  Transmission Date: 20180711
  Serious: Yes (Hospitalization)
  Sender: FDA-Public Use
  Company Number: IND-DE-009507513-1804DEU009556

PATIENT
  Age: 82 Year
  Sex: Male

DRUGS (10)
  1. AMINOPHYLLINE. [Concomitant]
     Active Substance: AMINOPHYLLINE
     Dosage: 1-0-0-0
  2. CABERGOLINE. [Concomitant]
     Active Substance: CABERGOLINE
     Dosage: 0-0-0-1.5
  3. GLUTAMINE [Concomitant]
     Active Substance: GLUTAMINE
     Dosage: 1-1-0-0
  4. RAMIPRIL. [Concomitant]
     Active Substance: RAMIPRIL
     Dosage: 5 MG, 1-0-0-0
  5. ZOLPIDEM [Concomitant]
     Active Substance: ZOLPIDEM\ZOLPIDEM TARTRATE
     Dosage: 10 MG, 0-0-0-1
  6. ETORICOXIB MSD 30 MG FILMTABLETTEN [Suspect]
     Active Substance: ETORICOXIB
     Dosage: 1-0-0-0
  7. BISOPROLOL [Suspect]
     Active Substance: BISOPROLOL
     Dosage: 5 MG, 1-0-0-0
  8. MAGNESIUM (UNSPECIFIED) (+) POTASSIUM (UNSPECIFIED) [Concomitant]
     Dosage: 1-0-1-0
  9. PANTOPRAZOLE [Concomitant]
     Active Substance: PANTOPRAZOLE
     Dosage: 40 MG, 1-0-0-0
  10. NALOXONE HYDROCHLORIDE (+) TILIDINE HYDROCHLORIDE [Concomitant]
     Dosage: 50/4 MG, 1-0-0-1

REACTIONS (5)
  - Fatigue [Unknown]
  - Contraindicated product administered [Unknown]
  - Nausea [Unknown]
  - Drug prescribing error [Unknown]
  - General physical health deterioration [Unknown]
